FAERS Safety Report 5082536-6 (Version None)
Quarter: 2006Q3

REPORT INFORMATION
  Report Type: 
  Country: None (occurrence: None)
  Receive Date: 20060817
  Receipt Date: 20060808
  Transmission Date: 20061208
  Serious: Yes (Hospitalization)
  Sender: FDA-Public Use
  Company Number: JP-ROCHE-459048

PATIENT
  Age: 59 Year
  Sex: Female
  Weight: 46 kg

DRUGS (5)
  1. ROCEPHIN [Suspect]
     Indication: LARYNGOTRACHEO BRONCHITIS
     Route: 041
     Dates: start: 20060721, end: 20060721
  2. LEVOFLOXACIN [Concomitant]
     Dosage: DOSE FORM: ORAL FORMULATION (NOT OTHERWISE SPECIFIED).
     Route: 048
     Dates: start: 20060719, end: 20060725
  3. NIFLAN [Concomitant]
     Dosage: DOSE FORM: ORAL FORMULATION (NOT OTHERWISE SPECIFIED).
     Route: 048
     Dates: start: 20060719, end: 20060725
  4. ASVERIN [Concomitant]
     Dosage: DOSE FORM: ORAL FORMULATION (NOT OTHERWISE SPECIFIED).
     Route: 048
     Dates: start: 20060719, end: 20060725
  5. ANTOBRON [Concomitant]
     Dosage: DOSE FORM: ORAL FORMULATION (NOT OTHERWISE SPECIFIED).
     Route: 048
     Dates: start: 20060719, end: 20060725

REACTIONS (5)
  - BLOOD PRESSURE INCREASED [None]
  - CONVULSION [None]
  - CYANOSIS [None]
  - SHOCK [None]
  - TREMOR [None]
